FAERS Safety Report 8865597 (Version 1)
Quarter: 2012Q4

REPORT INFORMATION
  Report Type: 
  Country: US (occurrence: US)
  Receive Date: 20121024
  Receipt Date: 20121024
  Transmission Date: 20130627
  Serious: No
  Sender: FDA-Public Use
  Company Number: US-AMGEN-USASP2012003895

PATIENT
  Age: 49 Year
  Sex: Male
  Weight: 86.17 kg

DRUGS (7)
  1. ENBREL [Suspect]
     Indication: PRODUCT USED FOR UNKNOWN INDICATION
     Dosage: 25 mg, 2 times/wk
  2. OXYCODONE [Concomitant]
     Dosage: 15 mg, UNK
  3. ATIVAN [Concomitant]
     Dosage: 1 mg, UNK
  4. HYDROCORTISON                      /00028601/ [Concomitant]
     Dosage: 2.5 %, UNK
  5. CLOBETASOL [Concomitant]
     Dosage: 0.05 %, UNK
  6. PRILOSEC                           /00661201/ [Concomitant]
     Dosage: 10 mg, UNK
  7. VICOPROFEN [Concomitant]
     Dosage: UNK

REACTIONS (4)
  - Infection susceptibility increased [Unknown]
  - Infection [Unknown]
  - Nasopharyngitis [Unknown]
  - Viral pharyngitis [Unknown]
